FAERS Safety Report 8811311 (Version 2)
Quarter: 2012Q4

REPORT INFORMATION
  Report Type: 
  Country: JP (occurrence: JP)
  Receive Date: 20120927
  Receipt Date: 20121228
  Transmission Date: 20130627
  Serious: Yes (Disabling)
  Sender: FDA-Public Use
  Company Number: JP-ELI_LILLY_AND_COMPANY-JP201209005634

PATIENT
  Age: 51 Year
  Sex: Female
  Weight: 55 kg

DRUGS (8)
  1. CYMBALTA [Suspect]
     Indication: DEPRESSION
     Dosage: 20 mg, qd
     Route: 048
     Dates: start: 20110608, end: 20110621
  2. CYMBALTA [Suspect]
     Dosage: 40 mg, qd
     Route: 048
     Dates: start: 20110622, end: 20110705
  3. PAXIL [Concomitant]
     Indication: DEPRESSION
     Dosage: UNK
     Route: 048
     Dates: start: 20110412, end: 20110418
  4. PAXIL [Concomitant]
     Dosage: UNK
     Route: 048
     Dates: start: 20110419, end: 20110523
  5. PAXIL [Concomitant]
     Dosage: UNK
     Route: 048
     Dates: start: 20110524, end: 20110606
  6. PAXIL [Concomitant]
     Dosage: UNK
     Route: 048
     Dates: start: 20110607, end: 20110620
  7. PAXIL [Concomitant]
     Dosage: UNK
     Route: 048
     Dates: start: 20110621, end: 20110704
  8. HALCION [Concomitant]
     Dosage: UNK
     Route: 048
     Dates: start: 20110524, end: 20110801

REACTIONS (1)
  - Renal impairment [Not Recovered/Not Resolved]
